FAERS Safety Report 19953678 (Version 1)
Quarter: 2021Q4

REPORT INFORMATION
  Report Type: Spontaneous
  Country: US (occurrence: US)
  Receive Date: 20211012
  Receipt Date: 20211012
  Transmission Date: 20220303
  Serious: No
  Sender: FDA-Public Use
  Company Number: None

PATIENT
  Sex: Female

DRUGS (1)
  1. XELJANZ [Suspect]
     Active Substance: TOFACITINIB CITRATE
     Indication: Rheumatoid arthritis
     Dosage: ?          OTHER DOSE:1 TABLET;
     Route: 048
     Dates: start: 20161201

REACTIONS (3)
  - Herpes zoster [None]
  - Therapy interrupted [None]
  - Pain [None]
